FAERS Safety Report 17476646 (Version 1)
Quarter: 2020Q1

REPORT INFORMATION
  Report Type: Report from Study
  Country: US (occurrence: US)
  Receive Date: 20200228
  Receipt Date: 20200228
  Transmission Date: 20200409
  Serious: Yes (Death, Other)
  Sender: FDA-Public Use
  Company Number: US-AUROBINDO-AUR-APL-2020-009717

PATIENT

DRUGS (2)
  1. PENICILLIN NOS [Suspect]
     Active Substance: PENICILLIN
     Indication: STAPHYLOCOCCAL BACTERAEMIA
     Dosage: UNK
     Route: 065
  2. NAFCILLIN [Suspect]
     Active Substance: NAFCILLIN SODIUM
     Indication: STAPHYLOCOCCAL BACTERAEMIA
     Dosage: UNK
     Route: 065

REACTIONS (3)
  - Treatment failure [Unknown]
  - Sepsis [Fatal]
  - Staphylococcal bacteraemia [Fatal]
